FAERS Safety Report 5805933-7 (Version None)
Quarter: 2008Q3

REPORT INFORMATION
  Report Type: 
  Country: None (occurrence: None)
  Receive Date: 20080710
  Receipt Date: 20080707
  Transmission Date: 20090109
  Serious: Yes (Hospitalization)
  Sender: FDA-Public Use
  Company Number: US-ASTRAZENECA-2008UW08105

PATIENT
  Age: 14465 Day
  Sex: Male
  Weight: 113.6 kg

DRUGS (2)
  1. SEROQUEL XR [Suspect]
     Indication: BIPOLAR DISORDER
     Route: 048
     Dates: start: 20071008, end: 20080418
  2. KLONOPIN [Concomitant]
     Indication: ANXIETY
     Route: 048

REACTIONS (2)
  - ANAL FISSURE [None]
  - CONSTIPATION [None]
